FAERS Safety Report 24784501 (Version 2)
Quarter: 2025Q1

REPORT INFORMATION
  Report Type: Spontaneous
  Country: SE (occurrence: SE)
  Receive Date: 20241227
  Receipt Date: 20250102
  Transmission Date: 20250409
  Serious: Yes (Other)
  Sender: OTSUKA
  Company Number: None

PATIENT
  Age: 21 Year
  Sex: Female

DRUGS (16)
  1. ABILIFY MAINTENA [Suspect]
     Active Substance: ARIPIPRAZOLE
     Indication: Delusion
     Route: 030
     Dates: start: 20230327
  2. ABILIFY MAINTENA [Suspect]
     Active Substance: ARIPIPRAZOLE
     Indication: Hallucination, auditory
  3. ABILIFY MAINTENA [Suspect]
     Active Substance: ARIPIPRAZOLE
     Indication: Mood swings
  4. ABILIFY MAINTENA [Suspect]
     Active Substance: ARIPIPRAZOLE
     Indication: Psychotic disorder
  5. GRAZAX [Concomitant]
     Active Substance: PHLEUM PRATENSE POLLEN
     Indication: Product used for unknown indication
     Route: 065
     Dates: start: 20211001, end: 20240930
  6. DESLORATADINE [Concomitant]
     Active Substance: DESLORATADINE
     Indication: Product used for unknown indication
     Route: 065
     Dates: start: 20190531, end: 20240605
  7. MOMETASONE [Concomitant]
     Active Substance: MOMETASONE
     Indication: Product used for unknown indication
     Route: 065
     Dates: start: 20210201, end: 20240605
  8. OLANZAPINE [Concomitant]
     Active Substance: OLANZAPINE
     Indication: Product used for unknown indication
     Route: 065
     Dates: start: 20230412, end: 20231010
  9. NEXPLANON [Concomitant]
     Active Substance: ETONOGESTREL
     Indication: Product used for unknown indication
     Route: 065
     Dates: start: 20220503
  10. LIVOSTIN [Concomitant]
     Active Substance: LEVOCABASTINE HYDROCHLORIDE
     Indication: Product used for unknown indication
     Dosage: 1 DF, BID, UNTIL FURTHER NOTICE
     Route: 065
     Dates: start: 20190531, end: 20240605
  11. NAPROXEN [Concomitant]
     Active Substance: NAPROXEN
     Indication: Product used for unknown indication
     Route: 065
     Dates: start: 20191222, end: 20231010
  12. MELATONIN [Concomitant]
     Active Substance: MELATONIN
     Indication: Product used for unknown indication
     Dosage: 1 AT 8 P.M.
     Route: 065
     Dates: start: 20221201, end: 20231120
  13. BETULA PENDULA POLLEN [Concomitant]
     Active Substance: BETULA PENDULA POLLEN
     Indication: Seasonal allergy
     Route: 065
     Dates: start: 20211001, end: 20240930
  14. OLANZAPINE [Concomitant]
     Active Substance: OLANZAPINE
     Indication: Product used for unknown indication
     Route: 065
     Dates: start: 20230704, end: 20230916
  15. LITHIUM SULFATE [Concomitant]
     Active Substance: LITHIUM SULFATE
     Indication: Product used for unknown indication
     Route: 065
     Dates: start: 20230725, end: 20230804
  16. TRIMEPRAZINE TARTRATE [Concomitant]
     Active Substance: TRIMEPRAZINE TARTRATE
     Indication: Product used for unknown indication
     Route: 065
     Dates: start: 20230405, end: 20240125

REACTIONS (3)
  - Altered state of consciousness [Recovering/Resolving]
  - Oculogyric crisis [Recovering/Resolving]
  - Product use in unapproved indication [Unknown]

NARRATIVE: CASE EVENT DATE: 20230327
